FAERS Safety Report 6370210-5 (Version None)
Quarter: 2009Q3

REPORT INFORMATION
  Report Type: 
  Country: None (occurrence: None)
  Receive Date: 20090922
  Receipt Date: 20090922
  Transmission Date: 20100115
  Serious: Yes (Disabling)
  Sender: FDA-Public Use
  Company Number: None

PATIENT
  Age: 91 Year
  Sex: Female
  Weight: 58.9676 kg

DRUGS (2)
  1. HYALURONIDASE [Suspect]
     Indication: OPEN ANGLE GLAUCOMA
     Dosage: 1CC 1 DOSE OPHTHALMIC
     Route: 047
     Dates: start: 20090915, end: 20090915
  2. LIDOCAINE [Concomitant]

REACTIONS (7)
  - CELLULITIS ORBITAL [None]
  - EYE PAIN [None]
  - EYE SWELLING [None]
  - OCULAR HYPERAEMIA [None]
  - PAROPHTHALMIA [None]
  - POST PROCEDURAL COMPLICATION [None]
  - VISUAL ACUITY REDUCED [None]
